FAERS Safety Report 8397565-4 (Version None)
Quarter: 2012Q2

REPORT INFORMATION
  Report Type: 
  Country: None (occurrence: None)
  Receive Date: 20120531
  Receipt Date: 20120525
  Transmission Date: 20120825
  Serious: Yes (Hospitalization)
  Sender: FDA-Public Use
  Company Number: US-BAYER-2011-114324

PATIENT
  Age: 27 Year
  Sex: Female
  Weight: 74.83 kg

DRUGS (8)
  1. YASMIN [Suspect]
     Indication: CONTRACEPTION
     Dosage: UNK
     Dates: start: 20041223, end: 20080202
  2. YAZ [Suspect]
     Indication: CONTRACEPTION
     Dosage: UNK
     Dates: start: 20091101, end: 20100101
  3. DROSPIRENONE AND ETHINYL ESTRADIOL [Suspect]
     Indication: ACNE
  4. YASMIN [Suspect]
     Indication: ACNE
  5. DOXYCYCLINE HYCLATE [Concomitant]
     Dosage: 150 UNK, UNK
  6. DROSPIRENONE AND ETHINYL ESTRADIOL [Suspect]
     Indication: CONTRACEPTION
     Dosage: UNK
     Dates: start: 20090905, end: 20100101
  7. FLUVIRIN [Concomitant]
     Dosage: 5 ML, UNK
     Dates: start: 20091020
  8. CYCLOBENZAPRINE [Concomitant]
     Dosage: 10 UNK, UNK
     Route: 048
     Dates: start: 20100108

REACTIONS (5)
  - PAIN IN EXTREMITY [None]
  - CHEST PAIN [None]
  - PULMONARY EMBOLISM [None]
  - PULMONARY THROMBOSIS [None]
  - DYSPNOEA [None]
